FAERS Safety Report 17468823 (Version 3)
Quarter: 2020Q1

REPORT INFORMATION
  Report Type: Spontaneous
  Country: US (occurrence: US)
  Receive Date: 20200227
  Receipt Date: 20200325
  Transmission Date: 20200409
  Serious: Yes (Other)
  Sender: FDA-Public Use
  Company Number: US-PFIZER INC-2020082459

PATIENT
  Age: 54 Year
  Sex: Female
  Weight: 68.4 kg

DRUGS (11)
  1. BUPROPION. [Concomitant]
     Active Substance: BUPROPION
     Dosage: UNK
     Dates: start: 1998
  2. XANAX [Suspect]
     Active Substance: ALPRAZOLAM
     Indication: PANIC ATTACK
     Dosage: 1 MG, 4X/DAY
     Dates: start: 1997
  3. XANAX [Suspect]
     Active Substance: ALPRAZOLAM
     Indication: ANXIETY
     Dosage: 1 MG, 5X A DAY
     Dates: start: 199707
  4. VALIUM [Concomitant]
     Active Substance: DIAZEPAM
     Dosage: UNK, (TOOK FOR 1 MONTH + I STOPPED.)
     Dates: start: 1998
  5. XANAX [Suspect]
     Active Substance: ALPRAZOLAM
     Dosage: 1 MG, 3X/DAY
     Dates: start: 199707
  6. ALPRAZOLAM. [Suspect]
     Active Substance: ALPRAZOLAM
     Indication: ANXIETY
     Dosage: 0.5 DF, 1/2 TABLET 5 TIMES A DAY
     Route: 048
  7. PROZAC [Concomitant]
     Active Substance: FLUOXETINE HYDROCHLORIDE
     Dosage: UNK
     Dates: start: 1997, end: 2001
  8. LITHIUM. [Concomitant]
     Active Substance: LITHIUM
     Dosage: UNK, (TOOK FOR 1 MONTH, STOPPED)
     Dates: start: 1998
  9. ALPRAZOLAM. [Suspect]
     Active Substance: ALPRAZOLAM
     Indication: PANIC ATTACK
     Dosage: 1 MG, 4X/DAY
  10. ALPRAZOLAM. [Suspect]
     Active Substance: ALPRAZOLAM
     Dosage: 1 MG, 3X/DAY
     Route: 048
  11. BUPROPION. [Concomitant]
     Active Substance: BUPROPION
     Dosage: UNK
     Dates: start: 1997

REACTIONS (10)
  - Lung neoplasm malignant [Not Recovered/Not Resolved]
  - Drug dependence [Not Recovered/Not Resolved]
  - Dyspnoea [Unknown]
  - Malaise [Unknown]
  - Nausea [Unknown]
  - Feeling cold [Unknown]
  - Dizziness [Unknown]
  - Tremor [Not Recovered/Not Resolved]
  - Chills [Unknown]
  - Balance disorder [Unknown]

NARRATIVE: CASE EVENT DATE: 1997
